FAERS Safety Report 7086268-4 (Version None)
Quarter: 2010Q4

REPORT INFORMATION
  Report Type: 
  Country: None (occurrence: None)
  Receive Date: 20101105
  Receipt Date: 20101025
  Transmission Date: 20110411
  Serious: Yes (Life-Threatening, Hospitalization)
  Sender: FDA-Public Use
  Company Number: DE-MYLANLABS-2010S1019634

PATIENT
  Age: 76 Year
  Sex: Female
  Weight: 75 kg

DRUGS (3)
  1. METOPROLOL TARTRATE [Suspect]
     Indication: INTENTIONAL OVERDOSE
     Route: 048
  2. AMITRIPTYLINE HCL [Suspect]
     Indication: INTENTIONAL OVERDOSE
     Route: 048
  3. MELPERON [Suspect]
     Indication: INTENTIONAL OVERDOSE
     Route: 048

REACTIONS (6)
  - BRADYCARDIA [None]
  - COMA [None]
  - HYPOTENSION [None]
  - INTENTIONAL OVERDOSE [None]
  - MULTIPLE DRUG OVERDOSE INTENTIONAL [None]
  - SUICIDE ATTEMPT [None]
